FAERS Safety Report 6856551-3 (Version None)
Quarter: 2010Q3

REPORT INFORMATION
  Report Type: 
  Country: None (occurrence: None)
  Receive Date: 20100719
  Receipt Date: 20100708
  Transmission Date: 20110219
  Serious: Yes (Other)
  Sender: FDA-Public Use
  Company Number: US-ROCHE-714319

PATIENT
  Sex: Male
  Weight: 61.2 kg

DRUGS (6)
  1. TOCILIZUMAB [Suspect]
     Indication: RHEUMATOID ARTHRITIS
     Dosage: THE PATIENT WAS PREVIOUSLY ENROLLED IN STUDY WA18063
     Route: 042
  2. TOCILIZUMAB [Suspect]
     Dosage: LAST DOSE PRIOR TO SAE ON 30 JUNE 2010
     Route: 042
     Dates: start: 20060216
  3. METHOTREXATE [Concomitant]
     Dates: start: 20060125
  4. FOLIC ACID [Concomitant]
     Dates: start: 20060125
  5. DICLOFENAC SODIUM [Concomitant]
     Dates: start: 20060510
  6. PANCREATIN [Concomitant]
     Dosage: DRUG: PANCREATIN ENZYME OTC
     Dates: start: 20090114

REACTIONS (1)
  - LUNG NEOPLASM [None]
